FAERS Safety Report 5155396-2 (Version None)
Quarter: 2006Q4

REPORT INFORMATION
  Report Type: 
  Country: None (occurrence: None)
  Receive Date: 20061121
  Receipt Date: 20061116
  Transmission Date: 20070319
  Serious: Yes (Other)
  Sender: FDA-Public Use
  Company Number: US-SANOFI-SYNTHELABO-A03200606912

PATIENT
  Sex: Female

DRUGS (6)
  1. LEUCOVORIN CALCIUM [Suspect]
     Dosage: UNK
     Route: 065
     Dates: start: 20061114, end: 20061114
  2. ELOXATIN [Suspect]
     Indication: DRUG USE FOR UNKNOWN INDICATION
     Route: 042
     Dates: start: 20061114, end: 20061114
  3. DEXAMETHASONE TAB [Concomitant]
     Route: 065
     Dates: start: 20061114, end: 20061114
  4. ALOXI [Concomitant]
     Route: 042
     Dates: start: 20061114, end: 20061114
  5. DEXTROSE [Concomitant]
     Route: 042
     Dates: start: 20061114, end: 20061114
  6. ATIVAN [Concomitant]
     Route: 042
     Dates: start: 20061114, end: 20061114

REACTIONS (9)
  - BLOOD PRESSURE DECREASED [None]
  - CHEST DISCOMFORT [None]
  - CONVULSION [None]
  - DEPRESSED LEVEL OF CONSCIOUSNESS [None]
  - HEART RATE INCREASED [None]
  - INFUSION RELATED REACTION [None]
  - NAUSEA [None]
  - OXYGEN SATURATION DECREASED [None]
  - VOMITING PROJECTILE [None]
